FAERS Safety Report 21526232 (Version 1)
Quarter: 2022Q4

REPORT INFORMATION
  Report Type: Spontaneous
  Country: US (occurrence: US)
  Receive Date: 20221031
  Receipt Date: 20221031
  Transmission Date: 20230113
  Serious: Yes (Other)
  Sender: FDA-Public Use
  Company Number: US-drreddys-LIT/USA/22/0156495

PATIENT
  Age: 51 Year
  Sex: Female

DRUGS (15)
  1. MINOCYCLINE HYDROCHLORIDE [Suspect]
     Active Substance: MINOCYCLINE HYDROCHLORIDE
     Indication: Babesiosis
  2. MINOCYCLINE HYDROCHLORIDE [Suspect]
     Active Substance: MINOCYCLINE HYDROCHLORIDE
     Route: 048
  3. HYDROXYCHLOROQUINE [Suspect]
     Active Substance: HYDROXYCHLOROQUINE
     Indication: Babesiosis
  4. HYDROXYCHLOROQUINE [Suspect]
     Active Substance: HYDROXYCHLOROQUINE
     Indication: Lyme disease
     Route: 048
  5. DAPSONE [Suspect]
     Active Substance: DAPSONE
     Indication: Babesiosis
     Dosage: INCREASED
  6. DAPSONE [Suspect]
     Active Substance: DAPSONE
     Route: 048
  7. DAPSONE [Suspect]
     Active Substance: DAPSONE
  8. DAPSONE [Suspect]
     Active Substance: DAPSONE
  9. RIFAMPIN [Suspect]
     Active Substance: RIFAMPIN
     Indication: Babesiosis
     Route: 048
  10. NYSTATIN [Suspect]
     Active Substance: NYSTATIN
     Indication: Babesiosis
  11. NYSTATIN [Suspect]
     Active Substance: NYSTATIN
     Indication: Lyme disease
  12. ATOVAQUONE\PROGUANIL [Suspect]
     Active Substance: ATOVAQUONE\PROGUANIL
     Indication: Babesiosis
  13. ATOVAQUONE\PROGUANIL [Suspect]
     Active Substance: ATOVAQUONE\PROGUANIL
     Indication: Lyme disease
  14. LEVOMEFOLIC ACID [Suspect]
     Active Substance: LEVOMEFOLIC ACID
     Indication: Babesiosis
  15. METHIMAZOLE [Concomitant]
     Active Substance: METHIMAZOLE
     Indication: Hyperthyroidism

REACTIONS (2)
  - Nausea [Unknown]
  - Vomiting [Unknown]
